FAERS Safety Report 5079023-8 (Version None)
Quarter: 2006Q3

REPORT INFORMATION
  Report Type: 
  Country: None (occurrence: None)
  Receive Date: 20060814
  Receipt Date: 20060803
  Transmission Date: 20061208
  Serious: Yes (Other)
  Sender: FDA-Public Use
  Company Number: PHEH2006US09938

PATIENT
  Age: 57 Year
  Sex: Female

DRUGS (4)
  1. FEMARA [Suspect]
     Indication: BREAST CANCER
     Dosage: 2.5 MG, QD
     Route: 048
     Dates: start: 20051012, end: 20060404
  2. FEMARA [Suspect]
     Dosage: 2.5 MG, QD
     Route: 048
     Dates: start: 20060501
  3. SELDANE [Concomitant]
     Dosage: UNK, PRN
  4. ADVIL [Concomitant]
     Dosage: UNK, PRN

REACTIONS (2)
  - HYPOAESTHESIA [None]
  - NEUROPATHY [None]
